FAERS Safety Report 9420678 (Version 1)
Quarter: 2013Q3

REPORT INFORMATION
  Report Type: Report from Study
  Country: CA (occurrence: CA)
  Receive Date: 20130725
  Receipt Date: 20130725
  Transmission Date: 20140515
  Serious: Yes (Hospitalization, Other)
  Sender: FDA-Public Use
  Company Number: PHHY2013CA078659

PATIENT
  Sex: Male

DRUGS (11)
  1. ACLASTA [Suspect]
     Indication: OSTEOPOROSIS
     Dosage: UNK UKN, UNK
     Route: 042
     Dates: start: 20090601
  2. ACLASTA [Suspect]
     Dosage: UNK UKN, UNK
     Route: 042
     Dates: start: 20100601
  3. ACLASTA [Suspect]
     Dosage: UNK UKN, UNK
     Route: 042
     Dates: start: 20110603
  4. ACLASTA [Suspect]
     Dosage: UNK UKN, UNK
     Route: 042
     Dates: start: 20120731
  5. DEFLAZACORT [Concomitant]
     Dosage: 24 MG, QD
  6. EFEXOR [Concomitant]
     Dosage: 3 X 37.5 MG
  7. BISOPROLOL [Concomitant]
     Dosage: 10 MG, QD
  8. LISINOPRIL [Concomitant]
     Dosage: 5 MG, QD
  9. LOSEC//OMEPRAZOLE [Concomitant]
     Dosage: 20 MG, QD
  10. CALCIUM [Concomitant]
     Dosage: 500 MG, BID
  11. VITAMIN D [Concomitant]
     Dosage: 10000 IU, QW

REACTIONS (3)
  - Diverticular perforation [Unknown]
  - Duchenne muscular dystrophy [Unknown]
  - Labyrinthitis [Unknown]
